FAERS Safety Report 4499729-9 (Version None)
Quarter: 2004Q4

REPORT INFORMATION
  Report Type: 
  Country: None (occurrence: None)
  Receive Date: 20041110
  Receipt Date: 20041110
  Transmission Date: 20050328
  Serious: No
  Sender: FDA-Public Use
  Company Number: None

PATIENT
  Age: 3 Year
  Sex: Male
  Weight: 14 kg

DRUGS (2)
  1. MAXIPIME [Suspect]
     Indication: OSTEOMYELITIS
     Dosage: INTRAVENOUS;700.0
     Route: 042
     Dates: start: 20041004, end: 20041028
  2. MAXIPIME [Suspect]
     Indication: STAPHYLOCOCCAL SEPSIS
     Dosage: INTRAVENOUS;700.0
     Route: 042
     Dates: start: 20041004, end: 20041028

REACTIONS (2)
  - NEUTROPENIA [None]
  - WHITE BLOOD CELL COUNT DECREASED [None]
